FAERS Safety Report 12348874 (Version 9)
Quarter: 2021Q2

REPORT INFORMATION
  Report Type: Report from Study
  Country: CO (occurrence: CO)
  Receive Date: 20160509
  Receipt Date: 20210520
  Transmission Date: 20210716
  Serious: Yes (Other)
  Sender: FDA-Public Use
  Company Number: PHHY2016CO061780

PATIENT
  Sex: Female
  Weight: 68 kg

DRUGS (3)
  1. VOTRIENT [Suspect]
     Active Substance: PAZOPANIB HYDROCHLORIDE
     Indication: METASTATIC RENAL CELL CARCINOMA
     Dosage: 400 MG, BID
     Route: 048
     Dates: start: 20150929
  2. VOTRIENT [Suspect]
     Active Substance: PAZOPANIB HYDROCHLORIDE
     Dosage: UNK (FOR 8 YEARS)
     Route: 048
  3. VOTRIENT [Suspect]
     Active Substance: PAZOPANIB HYDROCHLORIDE
     Dosage: 800 MG, QD
     Route: 048
     Dates: start: 20180312

REACTIONS (30)
  - Renal cell carcinoma recurrent [Recovered/Resolved]
  - Skin sensitisation [Unknown]
  - Gastritis [Unknown]
  - Illness [Unknown]
  - Fatigue [Unknown]
  - Thyroid disorder [Unknown]
  - Renal cell carcinoma recurrent [Unknown]
  - Haemorrhage [Unknown]
  - Drug intolerance [Unknown]
  - Nail discolouration [Unknown]
  - Headache [Unknown]
  - Alopecia [Unknown]
  - Metastasis [Recovered/Resolved]
  - Malaise [Unknown]
  - Anxiety [Unknown]
  - Abdominal pain upper [Unknown]
  - Gait inability [Unknown]
  - Onychoclasis [Unknown]
  - Discouragement [Unknown]
  - Thermal burn [Unknown]
  - Insomnia [Unknown]
  - Abdominal distension [Unknown]
  - Diarrhoea [Unknown]
  - Inappropriate schedule of product administration [Unknown]
  - Skin discolouration [Unknown]
  - Vomiting [Unknown]
  - Abdominal discomfort [Unknown]
  - Hypoaesthesia [Unknown]
  - Asthenia [Unknown]
  - Hypertension [Unknown]
